FAERS Safety Report 7496480-8 (Version None)
Quarter: 2011Q2

REPORT INFORMATION
  Report Type: 
  Country: None (occurrence: None)
  Receive Date: 20110523
  Receipt Date: 20110519
  Transmission Date: 20111010
  Serious: Yes (Other)
  Sender: FDA-Public Use
  Company Number: IT-ROCHE-750860

PATIENT
  Sex: Female

DRUGS (1)
  1. AVASTIN [Suspect]
     Dosage: FREQUENCY: TOTAL, PRE-DOSED, DISPOSABLE SYRINGES.
     Route: 031
     Dates: start: 20101221, end: 20101221

REACTIONS (1)
  - VITRITIS [None]
